FAERS Safety Report 14948941 (Version 2)
Quarter: 2018Q3

REPORT INFORMATION
  Report Type: Spontaneous
  Country: US (occurrence: US)
  Receive Date: 20180529
  Receipt Date: 20180810
  Transmission Date: 20181010
  Serious: No
  Sender: FDA-Public Use
  Company Number: US-GLAXOSMITHKLINE-US2018GSK092103

PATIENT
  Age: 73 Year
  Sex: Female

DRUGS (5)
  1. SPIRIVA [Concomitant]
     Active Substance: TIOTROPIUM BROMIDE MONOHYDRATE
  2. BREO ELLIPTA [Suspect]
     Active Substance: FLUTICASONE FUROATE\VILANTEROL TRIFENATATE
     Indication: CHRONIC OBSTRUCTIVE PULMONARY DISEASE
     Dosage: 1 PUFF(S), QD
     Dates: start: 201707
  3. TRELEGY ELLIPTA [Suspect]
     Active Substance: FLUTICASONE FUROATE\UMECLIDINIUM BROMIDE\VILANTEROL TRIFENATATE
     Indication: CHRONIC OBSTRUCTIVE PULMONARY DISEASE
     Dosage: 1 PUFF(S), QD
     Dates: start: 20180711, end: 20180712
  4. PREDNISONE. [Concomitant]
     Active Substance: PREDNISONE
  5. IPRATROPIUM [Concomitant]
     Active Substance: IPRATROPIUM

REACTIONS (14)
  - Treatment noncompliance [Unknown]
  - Rhinorrhoea [Unknown]
  - Abdominal distension [Unknown]
  - Dysphonia [Unknown]
  - Malaise [Unknown]
  - Vision blurred [Unknown]
  - Wrong technique in device usage process [Unknown]
  - Muscle spasms [Unknown]
  - Visual impairment [Unknown]
  - Alopecia [Unknown]
  - Miosis [Unknown]
  - Nasal congestion [Unknown]
  - Throat irritation [Unknown]
  - Pain in extremity [Unknown]

NARRATIVE: CASE EVENT DATE: 20180711
